FAERS Safety Report 9077618 (Version 1)
Quarter: 2013Q1

REPORT INFORMATION
  Report Type: Report from Study
  Country: US (occurrence: US)
  Receive Date: 20130130
  Receipt Date: 20130130
  Transmission Date: 20140127
  Serious: No
  Sender: FDA-Public Use
  Company Number: US-ABBOTT-12P-163-0952344-00

PATIENT
  Age: 43 Year
  Sex: Female

DRUGS (3)
  1. HUMIRA 40 MG/0.8 ML PEN [Suspect]
     Indication: CROHN^S DISEASE
     Dates: start: 201204
  2. NEXIUM [Concomitant]
     Indication: GASTROOESOPHAGEAL REFLUX DISEASE
     Dosage: DAILY
  3. MELATONIN [Concomitant]
     Indication: INSOMNIA
     Dosage: BEDTIME

REACTIONS (4)
  - Burning sensation [Not Recovered/Not Resolved]
  - Fungal infection [Not Recovered/Not Resolved]
  - Fungal infection [Unknown]
  - Pain [Not Recovered/Not Resolved]
